FAERS Safety Report 10884539 (Version 1)
Quarter: 2015Q1

REPORT INFORMATION
  Report Type: Spontaneous
  Country: US (occurrence: None)
  Receive Date: 20150227
  Receipt Date: 20150227
  Transmission Date: 20150721
  Serious: No
  Sender: FDA-Public Use
  Company Number: None

PATIENT
  Age: 72 Year
  Sex: Female
  Weight: 58.97 kg

DRUGS (6)
  1. CLINDAMYCIN [Suspect]
     Active Substance: CLINDAMYCIN\CLINDAMYCIN PHOSPHATE
     Indication: ANTIBIOTIC PROPHYLAXIS
     Dosage: 1ST WEEK SEPT. 2014, 7 DAYS LATER, 150 MG, 1 EVERY 6 HRS, 7 DAYS, BY MOUTH
     Route: 048
     Dates: start: 201409
  2. CLINDAMYCIN [Suspect]
     Active Substance: CLINDAMYCIN\CLINDAMYCIN PHOSPHATE
     Indication: ORAL SURGERY
     Dosage: 1ST WEEK SEPT. 2014, 7 DAYS LATER, 150 MG, 1 EVERY 6 HRS, 7 DAYS, BY MOUTH
     Route: 048
     Dates: start: 201409
  3. D-3 [Concomitant]
     Active Substance: CHOLECALCIFEROL
  4. VITAMIN B12 [Concomitant]
     Active Substance: CYANOCOBALAMIN
  5. LISINOPRIL. [Concomitant]
     Active Substance: LISINOPRIL
  6. LUTEIN [Concomitant]
     Active Substance: LUTEIN

REACTIONS (3)
  - Clostridium difficile infection [None]
  - Product packaging issue [None]
  - Frequent bowel movements [None]

NARRATIVE: CASE EVENT DATE: 20140904
